FAERS Safety Report 9057259 (Version 1)
Quarter: 2013Q1

REPORT INFORMATION
  Report Type: Report from Study
  Country: JP (occurrence: JP)
  Receive Date: 20130131
  Receipt Date: 20130131
  Transmission Date: 20140127
  Serious: Yes (Other)
  Sender: FDA-Public Use
  Company Number: JP-GLAXOSMITHKLINE-B0859972A

PATIENT
  Age: 65 None
  Sex: Female
  Weight: 55 kg

DRUGS (7)
  1. TYKERB [Suspect]
     Indication: BREAST CANCER
     Route: 048
     Dates: start: 20090715
  2. XELODA [Suspect]
     Route: 048
     Dates: start: 20090715, end: 20090823
  3. XELODA [Suspect]
     Route: 048
     Dates: start: 20090824
  4. FEMARA [Concomitant]
     Indication: BREAST CANCER
     Route: 048
  5. BONALON [Concomitant]
     Indication: OSTEOPOROSIS
     Route: 048
     Dates: end: 20090809
  6. PYDOXAL [Concomitant]
     Indication: PROPHYLAXIS
     Route: 048
     Dates: start: 20090715
  7. LOPEMIN [Concomitant]
     Indication: PROPHYLAXIS
     Route: 048
     Dates: start: 20090715, end: 20100715

REACTIONS (6)
  - Compression fracture [Not Recovered/Not Resolved]
  - Diarrhoea [Recovering/Resolving]
  - Palmar-plantar erythrodysaesthesia syndrome [Not Recovered/Not Resolved]
  - Pigmentation disorder [Not Recovered/Not Resolved]
  - Malaise [Not Recovered/Not Resolved]
  - Periproctitis [Recovering/Resolving]
